FAERS Safety Report 20414220 (Version 1)
Quarter: 2022Q1

REPORT INFORMATION
  Report Type: Spontaneous
  Country: EG (occurrence: EG)
  Receive Date: 20220202
  Receipt Date: 20220202
  Transmission Date: 20220424
  Serious: Yes (Disabling)
  Sender: FDA-Public Use
  Company Number: EG-NOVOPROD-885667

PATIENT
  Age: 911 Month
  Sex: Female
  Weight: 78 kg

DRUGS (7)
  1. EXFORGE [Concomitant]
     Active Substance: AMLODIPINE BESYLATE\VALSARTAN
     Indication: Hypertension
     Dosage: 1 TAB LAST YEAR
     Route: 048
  2. ACTOS [Concomitant]
     Active Substance: PIOGLITAZONE HYDROCHLORIDE
     Dosage: 1 TAB MORNING SINCE LAST YEAR
     Route: 048
  3. CONCOR 5 PLUS [Concomitant]
     Indication: Hypertension
     Dosage: 1 TAB NIGHT IF NEEDED  5 YEARS AGO
     Route: 048
  4. TAMOXIFEN [Concomitant]
     Active Substance: TAMOXIFEN
     Indication: Neoplasm
     Dosage: 1 TAB MORNING - 1 TAB NIGHT AFTER 2005
     Route: 048
  5. .ALPHA.-LIPOIC ACID [Concomitant]
     Active Substance: .ALPHA.-LIPOIC ACID
     Indication: Inflammation
     Dosage: 1  TAB
     Route: 048
  6. INSULIN HUMAN [Suspect]
     Active Substance: INSULIN HUMAN
     Indication: Diabetes mellitus
     Dosage: 20 IU IN THE MORNING IF THE BLOOD GLUCOSE NOT EXCEED 150 MG/DL
     Route: 058
  7. INSULIN HUMAN [Suspect]
     Active Substance: INSULIN HUMAN
     Dosage: 24 IU,AT NIGHT AS THE FRUITS INCREASE THE BLOOD GLUCOSE LEVELS AFTERNOON
     Route: 058

REACTIONS (2)
  - Osteoporosis [Not Recovered/Not Resolved]
  - Tooth loss [Unknown]

NARRATIVE: CASE EVENT DATE: 20060101
